FAERS Safety Report 17304689 (Version 1)
Quarter: 2020Q1

REPORT INFORMATION
  Report Type: Spontaneous
  Country: JP (occurrence: JP)
  Receive Date: 20200122
  Receipt Date: 20200122
  Transmission Date: 20200409
  Serious: Yes (Life-Threatening, Other)
  Sender: FDA-Public Use
  Company Number: JP-GLAXOSMITHKLINE-JP2020JPN010716

PATIENT
  Age: 71 Year
  Sex: Female
  Weight: 45 kg

DRUGS (8)
  1. E KEPPRA TABLETS [Concomitant]
     Dosage: 1250 MG, 1D(500MG,700MG)
  2. NICERGOLINE TABLETS [Concomitant]
     Dosage: 5 MG, TID
     Route: 048
     Dates: start: 20191219, end: 20200104
  3. TENELIA [Concomitant]
     Active Substance: TENELIGLIPTIN
     Dosage: 20 MG, QD
     Route: 048
  4. FASTIC [Suspect]
     Active Substance: NATEGLINIDE
     Indication: BLOOD GLUCOSE ABNORMAL
     Dosage: 90 MG, TID
     Route: 048
     Dates: start: 20191223, end: 20200105
  5. LAMICTAL [Suspect]
     Active Substance: LAMOTRIGINE
     Indication: SEIZURE
     Dosage: 50 MG, QD
     Route: 048
     Dates: start: 20191219, end: 20200106
  6. E KEPPRA TABLETS [Concomitant]
     Dosage: 500 MG, BID
     Route: 048
  7. METGLUCO TABLETS [Concomitant]
     Dosage: 250 MG, BID
     Route: 048
     Dates: start: 20191202
  8. CLOPIDOGREL SULFATE [Suspect]
     Active Substance: CLOPIDOGREL BISULFATE
     Indication: CEREBRAL INFARCTION
     Dosage: 75 MG, QD
     Route: 048
     Dates: start: 20191212, end: 20200104

REACTIONS (2)
  - Idiopathic neutropenia [Recovered/Resolved]
  - Granulocytopenia [Recovered/Resolved]

NARRATIVE: CASE EVENT DATE: 20200104
